FAERS Safety Report 17075828 (Version 3)
Quarter: 2019Q4

REPORT INFORMATION
  Report Type: Spontaneous
  Country: KR (occurrence: KR)
  Receive Date: 20191126
  Receipt Date: 20191204
  Transmission Date: 20200122
  Serious: Yes (Death, Other)
  Sender: FDA-Public Use
  Company Number: KR-PFIZER INC-2019506672

PATIENT
  Age: 82 Year
  Sex: Male

DRUGS (3)
  1. FRAGMIN [Interacting]
     Active Substance: DALTEPARIN SODIUM
     Indication: ANTICOAGULANT THERAPY
     Dosage: 7500 IU, SINGLE
     Route: 058
     Dates: start: 20190623, end: 20190623
  2. CELEBREX [Suspect]
     Active Substance: CELECOXIB
     Dosage: 100 MG(HALF OF 200MG), 2X/DAY
     Route: 048
     Dates: start: 20190621
  3. FRAGMIN [Interacting]
     Active Substance: DALTEPARIN SODIUM
     Indication: THROMBOSIS

REACTIONS (6)
  - Haemoptysis [Unknown]
  - Heart rate increased [Unknown]
  - Pulmonary embolism [Fatal]
  - Blood pressure increased [Unknown]
  - Drug interaction [Unknown]
  - Thrombosis [Fatal]

NARRATIVE: CASE EVENT DATE: 20190623
